FAERS Safety Report 7628144-1 (Version None)
Quarter: 2011Q3

REPORT INFORMATION
  Report Type: 
  Country: None (occurrence: None)
  Receive Date: 20110720
  Receipt Date: 20110720
  Transmission Date: 20111222
  Serious: Yes (Other)
  Sender: FDA-Public Use
  Company Number: None

PATIENT
  Sex: Male

DRUGS (6)
  1. EGRIFTA [Suspect]
     Indication: LIPODYSTROPHY ACQUIRED
     Dosage: 2MG QD SUB Q
     Route: 058
     Dates: start: 20110606
  2. EGRIFTA [Suspect]
     Indication: URTICARIA
     Dosage: 2MG QD SUB Q
     Route: 058
     Dates: start: 20110606
  3. EGRIFTA [Suspect]
     Indication: LIPODYSTROPHY ACQUIRED
     Dosage: 2MG QD SUB Q
     Route: 058
     Dates: start: 20110529
  4. EGRIFTA [Suspect]
     Indication: URTICARIA
     Dosage: 2MG QD SUB Q
     Route: 058
     Dates: start: 20110529
  5. EGRIFTA [Suspect]
     Indication: LIPODYSTROPHY ACQUIRED
     Dosage: 2MG QD SUB Q
     Route: 058
     Dates: start: 20110613
  6. EGRIFTA [Suspect]
     Indication: URTICARIA
     Dosage: 2MG QD SUB Q
     Route: 058
     Dates: start: 20110613

REACTIONS (1)
  - SYNCOPE [None]
